FAERS Safety Report 7453390-X (Version None)
Quarter: 2011Q2

REPORT INFORMATION
  Report Type: 
  Country: None (occurrence: None)
  Receive Date: 20110502
  Receipt Date: 20110421
  Transmission Date: 20111010
  Serious: Yes (Hospitalization)
  Sender: FDA-Public Use
  Company Number: IT-ASTRAZENECA-2011SE23108

PATIENT
  Sex: Female

DRUGS (2)
  1. INTRAFER (FERROMALTOSO) [Concomitant]
     Indication: ANAEMIA
     Dosage: 50 MG / ML ORAL DROPS, SOLUTION BOTTLE 30 ML
     Route: 048
     Dates: start: 20110308, end: 20110308
  2. ATENOLOL [Suspect]
     Indication: TACHYCARDIA
     Route: 048
     Dates: start: 20101201, end: 20110305

REACTIONS (1)
  - EXTRASYSTOLES [None]
